FAERS Safety Report 11240874 (Version 1)
Quarter: 2015Q3

REPORT INFORMATION
  Report Type: Spontaneous
  Country: US (occurrence: US)
  Receive Date: 20150706
  Receipt Date: 20150706
  Transmission Date: 20151125
  Serious: Yes (Other)
  Sender: FDA-Public Use
  Company Number: US-SA-2015SA093446

PATIENT
  Sex: Male

DRUGS (3)
  1. APIDRA [Suspect]
     Active Substance: INSULIN GLULISINE
     Indication: TYPE 1 DIABETES MELLITUS
     Dosage: DOSE: VARIES AS NEEDED (2-3 UNITS)
     Route: 065
  2. HUMULIN NOS [Concomitant]
     Active Substance: INSULIN HUMAN
  3. HUMULIN N [Concomitant]
     Active Substance: INSULIN HUMAN
     Dosage: DOSE:40 UNIT(S)

REACTIONS (3)
  - Wrong technique in product usage process [Unknown]
  - Blood glucose decreased [Unknown]
  - Road traffic accident [Unknown]
